FAERS Safety Report 8086785-4 (Version None)
Quarter: 2012Q1

REPORT INFORMATION
  Report Type: 
  Country: None (occurrence: None)
  Receive Date: 20120128
  Receipt Date: 20110615
  Transmission Date: 20120608
  Serious: No
  Sender: FDA-Public Use
  Company Number: US-ABBOTT-11P-163-0732194-00

PATIENT
  Age: 40 Year
  Sex: Male

DRUGS (3)
  1. SULFASALAZINE [Concomitant]
     Indication: PRODUCT USED FOR UNKNOWN INDICATION
  2. NSAIDS [Concomitant]
     Indication: PRODUCT USED FOR UNKNOWN INDICATION
     Dosage: PRN
  3. HUMIRA [Suspect]
     Indication: RHEUMATOID ARTHRITIS
     Dosage: THREE INJECTIONS

REACTIONS (3)
  - BLOOD TEST ABNORMAL [None]
  - ANTINUCLEAR ANTIBODY POSITIVE [None]
  - ALOPECIA [None]
